FAERS Safety Report 6515822-0 (Version None)
Quarter: 2009Q4

REPORT INFORMATION
  Report Type: 
  Country: None (occurrence: None)
  Receive Date: 20091223
  Receipt Date: 20091216
  Transmission Date: 20100525
  Serious: Yes (Hospitalization)
  Sender: FDA-Public Use
  Company Number: JP-EISAI INC.-E2090-00907-SPO-JP

PATIENT
  Sex: Male

DRUGS (3)
  1. EXCEGRAN [Suspect]
     Dosage: UNKNOWN
     Route: 048
     Dates: start: 20080101, end: 20080424
  2. FAMOTIDINE [Concomitant]
     Dosage: UNKNOWN
     Dates: start: 20080101
  3. CEFDINIR [Concomitant]
     Dosage: UNKNOWN
     Route: 048
     Dates: start: 20080414

REACTIONS (2)
  - DRUG RASH WITH EOSINOPHILIA AND SYSTEMIC SYMPTOMS [None]
  - STEVENS-JOHNSON SYNDROME [None]
